FAERS Safety Report 6567076-7 (Version None)
Quarter: 2010Q1

REPORT INFORMATION
  Report Type: 
  Country: None (occurrence: None)
  Receive Date: 20100127
  Receipt Date: 20100120
  Transmission Date: 20100710
  Serious: Yes (Hospitalization)
  Sender: FDA-Public Use
  Company Number: 2010EU000227

PATIENT
  Age: 61 Year
  Sex: Female

DRUGS (6)
  1. VESICARE [Suspect]
     Indication: INCONTINENCE
     Dosage: 5 MG, UID/QD, ORAL
     Route: 048
     Dates: start: 20091127, end: 20091226
  2. PERINDOPRIL TERT-BUTYLAMINE RATIOPHARM (PERINDOPRIL ERBUMINE) [Concomitant]
  3. METFORMINE HCL PCH (METFORMIN HYDROCHLORIDE) TABLET, 500 MG [Concomitant]
  4. GLICAZIDA (GLICAZIDA) [Concomitant]
  5. AMILORIDE HCL/HYDROCHLOORTHIAZIDE (AMILORIDE HYDROCHLORIDE, HYDROCHLOR [Concomitant]
  6. LIPITOR [Concomitant]

REACTIONS (1)
  - CYSTITIS HAEMORRHAGIC [None]
